FAERS Safety Report 8165973-2 (Version None)
Quarter: 2012Q1

REPORT INFORMATION
  Report Type: 
  Country: None (occurrence: None)
  Receive Date: 20120227
  Receipt Date: 20120110
  Transmission Date: 20120608
  Serious: No
  Sender: FDA-Public Use
  Company Number: US-MYLANLABS-2011S1026155

PATIENT
  Age: 19 Year
  Sex: Female

DRUGS (2)
  1. AMNESTEEM [Suspect]
     Indication: ACNE
     Route: 048
     Dates: start: 20111025, end: 20111027
  2. LOESTRIN FE 1/20 [Concomitant]

REACTIONS (1)
  - DIARRHOEA [None]
